FAERS Safety Report 9197702 (Version 1)
Quarter: 2013Q1

REPORT INFORMATION
  Report Type: Spontaneous
  Country: GB (occurrence: GB)
  Receive Date: 20130328
  Receipt Date: 20130328
  Transmission Date: 20140127
  Serious: Yes (Other)
  Sender: FDA-Public Use
  Company Number: GB-TEVA-394203ISR

PATIENT
  Age: 63 Year
  Sex: Male

DRUGS (1)
  1. FUROSEMIDE [Suspect]
     Dates: start: 20130312

REACTIONS (1)
  - Hallucination [Recovered/Resolved]
